FAERS Safety Report 14655249 (Version 1)
Quarter: 2018Q1

REPORT INFORMATION
  Report Type: Report from Study
  Country: BR (occurrence: BR)
  Receive Date: 20180319
  Receipt Date: 20180319
  Transmission Date: 20180509
  Serious: Yes (Death, Hospitalization, Other)
  Sender: FDA-Public Use
  Company Number: PHHY2018BR047763

PATIENT
  Sex: Male

DRUGS (3)
  1. EXELON [Suspect]
     Active Substance: RIVASTIGMINE TARTRATE
     Indication: DEMENTIA ALZHEIMER^S TYPE
     Dosage: 2 MG, BID
     Route: 048
  2. EXELON [Suspect]
     Active Substance: RIVASTIGMINE TARTRATE
     Dosage: 4 MG, BID
     Route: 048
  3. EXELON [Suspect]
     Active Substance: RIVASTIGMINE TARTRATE
     Dosage: 6 MG, BID
     Route: 048

REACTIONS (10)
  - Loss of consciousness [Fatal]
  - Hypophagia [Fatal]
  - General physical health deterioration [Unknown]
  - Cerebrovascular accident [Unknown]
  - Abdominal discomfort [Unknown]
  - Choking [Fatal]
  - Malaise [Unknown]
  - Dysphagia [Fatal]
  - Increased bronchial secretion [Fatal]
  - Dementia Alzheimer^s type [Unknown]
